FAERS Safety Report 8965493 (Version 1)
Quarter: 2012Q4

REPORT INFORMATION
  Report Type: Report from Study
  Country: ES (occurrence: ES)
  Receive Date: 20121213
  Receipt Date: 20121213
  Transmission Date: 20130627
  Serious: Yes (Death, Hospitalization)
  Sender: FDA-Public Use
  Company Number: ES-CELGENEUS-144-21880-12070325

PATIENT
  Age: 71 Year
  Sex: Male
  Weight: 64.5 kg

DRUGS (6)
  1. REVLIMID [Suspect]
     Indication: MULTIPLE MYELOMA
     Route: 048
     Dates: start: 20120619, end: 20120709
  2. DEXAMETHASONE [Suspect]
     Indication: MULTIPLE MYELOMA
     Route: 048
     Dates: start: 20120619, end: 20120710
  3. VELCADE [Suspect]
     Indication: MULTIPLE MYELOMA
     Route: 041
     Dates: start: 20110819, end: 20120524
  4. PREDNISONE [Suspect]
     Indication: MULTIPLE MYELOMA
     Route: 048
     Dates: start: 20110819, end: 20120506
  5. MELPHALAN [Suspect]
     Indication: MULTIPLE MYELOMA
     Route: 048
     Dates: start: 20110819, end: 20120506
  6. NORADRENALINE [Concomitant]
     Indication: HYPOTENSION
     Route: 065

REACTIONS (2)
  - Neutropenia [Fatal]
  - Escherichia sepsis [Fatal]
